FAERS Safety Report 9705506 (Version 1)
Quarter: 2013Q4

REPORT INFORMATION
  Report Type: Spontaneous
  Country: GB (occurrence: GB)
  Receive Date: 20131122
  Receipt Date: 20131122
  Transmission Date: 20140711
  Serious: Yes (Hospitalization)
  Sender: FDA-Public Use
  Company Number: GB-ACTAVIS-2013-21479

PATIENT
  Age: 35 Year
  Sex: Female
  Weight: 60.45 kg

DRUGS (4)
  1. DOCETAXEL [Suspect]
     Indication: BREAST CANCER METASTATIC
     Dosage: LAST DOSE PRIOR TO ADVERSE EVENT: 27/SEP/2012
     Route: 042
     Dates: start: 20120927
  2. DOCETAXEL [Suspect]
     Dosage: 130 MG, 1/ THREE WEEKS
     Route: 042
     Dates: start: 20121026
  3. HERCEPTIN [Suspect]
     Indication: BREAST CANCER METASTATIC
     Dosage: LOADING DOSE CYCLE 1, 493.5MG.DATE OF LAST DOSE PRIOR TO SAE: 27/SEP/2012
     Route: 042
     Dates: start: 20120927
  4. HERCEPTIN [Suspect]
     Route: 042

REACTIONS (1)
  - Neutropenic sepsis [Unknown]
